FAERS Safety Report 19856883 (Version 1)
Quarter: 2021Q3

REPORT INFORMATION
  Report Type: Spontaneous
  Country: DE (occurrence: DE)
  Receive Date: 20210920
  Receipt Date: 20210920
  Transmission Date: 20211014
  Serious: Yes (Other)
  Sender: FDA-Public Use
  Company Number: NVSC2021DE208159

PATIENT
  Age: 24 Year
  Sex: Male

DRUGS (13)
  1. PREDNISONE. [Suspect]
     Active Substance: PREDNISONE
     Indication: ANAPLASTIC LARGE-CELL LYMPHOMA
     Dosage: UNK,5 CYCLES
     Route: 065
  2. CISPLATIN. [Suspect]
     Active Substance: CISPLATIN
     Dosage: UNK, CYCLE REPEATED EVERY 22 DAYS
     Route: 042
  3. VINCRISTINE [Suspect]
     Active Substance: VINCRISTINE
     Indication: ANAPLASTIC LARGE-CELL LYMPHOMA
     Dosage: UNK, 5 CYCLES
     Route: 065
  4. BRENTUXIMAB VEDOTIN [Suspect]
     Active Substance: BRENTUXIMAB VEDOTIN
     Indication: ANAPLASTIC LARGE-CELL LYMPHOMA
     Dosage: 1.2 MG/KG, Q3W, GIVEN AS BOLUS DOSE FOR 30 MINUTES ON DAY 0 OF EVERY 22 DAY CYCLE
     Route: 040
  5. DOXORUBICIN [Suspect]
     Active Substance: DOXORUBICIN
     Indication: ANAPLASTIC LARGE-CELL LYMPHOMA
     Dosage: UNK,5 CYCLES
     Route: 065
  6. CYTARABINE. [Suspect]
     Active Substance: CYTARABINE
     Dosage: 4000 MG/M2, 2 DOSES OF 2000 MG/M2 GIVEN 12 HOURS APART ON DAY 2 OF 22 DAY CYCLE
     Route: 042
  7. BRENTUXIMAB VEDOTIN [Suspect]
     Active Substance: BRENTUXIMAB VEDOTIN
     Dosage: UNK,CYCLE REPEATED EVERY 22 DAYS
     Route: 040
  8. ENDOXAN [Suspect]
     Active Substance: CYCLOPHOSPHAMIDE
     Indication: ANAPLASTIC LARGE-CELL LYMPHOMA
     Dosage: UNK,5 CYCLES
     Route: 065
  9. PEGFILGRASTIM [Concomitant]
     Active Substance: PEGFILGRASTIM
     Indication: PROPHYLAXIS
     Dosage: 6 MG
     Route: 058
  10. CYTARABINE. [Suspect]
     Active Substance: CYTARABINE
     Indication: ANAPLASTIC LARGE-CELL LYMPHOMA
     Dosage: UNK, CYCLE REPETED EVERY 22 DAYS
     Route: 042
  11. CISPLATIN. [Suspect]
     Active Substance: CISPLATIN
     Indication: ANAPLASTIC LARGE-CELL LYMPHOMA
     Dosage: 70 MG/M2,DOSE ADMINISTERED ON DAY 1 (22 DAY CYCLE) OVER PERIOD OF 22 HOURS AS CONTINOUS INFUSION
     Route: 042
  12. DEXAMETHASONE. [Suspect]
     Active Substance: DEXAMETHASONE
     Indication: ANAPLASTIC LARGE-CELL LYMPHOMA
     Dosage: UNK,CYCLE REPATED EVERY 22 DAYS
     Route: 048
  13. DEXAMETHASONE. [Suspect]
     Active Substance: DEXAMETHASONE
     Dosage: 40 MG,ADMINISTERED ON DAYS 2?5, CYCLE REPEATED EVERY 22 DAYS
     Route: 048

REACTIONS (5)
  - Thrombocytopenia [Unknown]
  - Drug ineffective [Unknown]
  - Gastritis [Unknown]
  - Neoplasm progression [Unknown]
  - Neutropenia [Unknown]
